FAERS Safety Report 24737428 (Version 1)
Quarter: 2024Q4

REPORT INFORMATION
  Report Type: Spontaneous
  Country: US (occurrence: None)
  Receive Date: 20241214
  Receipt Date: 20241214
  Transmission Date: 20250115
  Serious: Yes (Hospitalization)
  Sender: Public
  Company Number: None

PATIENT
  Sex: Female
  Weight: 83.6 kg

DRUGS (2)
  1. DASATINIB [Suspect]
     Active Substance: DASATINIB
  2. METHOTREXATE [Suspect]
     Active Substance: METHOTREXATE

REACTIONS (3)
  - Blood creatine increased [None]
  - Renal impairment [None]
  - Pneumonia [None]

NARRATIVE: CASE EVENT DATE: 20241119
